FAERS Safety Report 4386433-0 (Version None)
Quarter: 2004Q2

REPORT INFORMATION
  Report Type: 
  Country: None (occurrence: None)
  Receive Date: 20040623
  Receipt Date: 20040609
  Transmission Date: 20050107
  Serious: Yes (Life-Threatening, Hospitalization)
  Sender: FDA-Public Use
  Company Number: EWC040639596

PATIENT
  Age: 13 Year
  Sex: Male

DRUGS (1)
  1. FLUOXETINE [Suspect]
     Indication: DEPRESSION
     Dosage: 20 MG DAY
     Dates: start: 20030601, end: 20040122

REACTIONS (6)
  - ALCOHOL POISONING [None]
  - COMA [None]
  - CONVULSION [None]
  - INJURY ASPHYXIATION [None]
  - RESPIRATORY ARREST [None]
  - SUICIDE ATTEMPT [None]
